FAERS Safety Report 4559944-2 (Version None)
Quarter: 2005Q1

REPORT INFORMATION
  Report Type: 
  Country: None (occurrence: None)
  Receive Date: 20050124
  Receipt Date: 20050107
  Transmission Date: 20050727
  Serious: Yes (Death)
  Sender: FDA-Public Use
  Company Number: 2005S1000087

PATIENT
  Age: 42 Year
  Sex: Male

DRUGS (5)
  1. CLOZAPINE [Suspect]
     Indication: SCHIZOPHRENIA
     Dosage: 200MG TID, ORAL
     Route: 048
     Dates: start: 20040315
  2. FLUVOXAMINE MALEATE [Concomitant]
  3. AMLODIPINE [Concomitant]
  4. DIVALPROEX SODIUM EXTENDED RELEASE [Concomitant]
  5. LOVASTATIN [Concomitant]

REACTIONS (1)
  - CEREBRAL HAEMORRHAGE [None]
